FAERS Safety Report 6682611-6 (Version None)
Quarter: 2010Q2

REPORT INFORMATION
  Report Type: 
  Country: None (occurrence: None)
  Receive Date: 20100414
  Receipt Date: 20100414
  Transmission Date: 20101027
  Serious: Yes (Hospitalization)
  Sender: FDA-Public Use
  Company Number: None

PATIENT
  Age: 68 Year
  Sex: Female

DRUGS (3)
  1. CEDAX [Suspect]
     Indication: PYREXIA
     Dosage: 400 MG QD PO
     Route: 048
     Dates: start: 20090715, end: 20090717
  2. CLARITHROMYCIN [Suspect]
     Indication: PYREXIA
     Dosage: 500 MG QD PO
     Route: 048
     Dates: start: 20090715, end: 20090717
  3. IRBESARTIN [Concomitant]

REACTIONS (5)
  - FACE OEDEMA [None]
  - HEPATITIS ACUTE [None]
  - LOCALISED OEDEMA [None]
  - MUCOSAL INFLAMMATION [None]
  - PAROTID GLAND ENLARGEMENT [None]
